FAERS Safety Report 21014893 (Version 1)
Quarter: 2022Q3

REPORT INFORMATION
  Report Type: Report from Study
  Country: CR (occurrence: CR)
  Receive Date: 20220628
  Receipt Date: 20220628
  Transmission Date: 20221027
  Serious: Yes (Other)
  Sender: FDA-Public Use
  Company Number: CR-NOVARTISPH-NVSC2022CR145845

PATIENT
  Age: 82 Year
  Sex: Female

DRUGS (3)
  1. EXELON [Suspect]
     Active Substance: RIVASTIGMINE TARTRATE
     Indication: Product used for unknown indication
     Dosage: 4.6 MG, Q24H (PATCH 5) (STARTED 2 YEARS AGO)
     Route: 065
  2. EXELON [Suspect]
     Active Substance: RIVASTIGMINE TARTRATE
     Dosage: 9.5 MG, Q24H (PATCH 10) (1 YEAR AGO)
     Route: 065
  3. EXELON [Suspect]
     Active Substance: RIVASTIGMINE TARTRATE
     Dosage: 13.3 MG, Q24H (PATCH 15) (22 DAYS AGO)
     Route: 065

REACTIONS (8)
  - Parkinson^s disease [Unknown]
  - Hallucination [Unknown]
  - Drug intolerance [Unknown]
  - Head discomfort [Unknown]
  - Crying [Unknown]
  - Feeling abnormal [Unknown]
  - Nervousness [Unknown]
  - Fear [Unknown]
